FAERS Safety Report 7775709-2 (Version None)
Quarter: 2011Q3

REPORT INFORMATION
  Report Type: 
  Country: None (occurrence: None)
  Receive Date: 20110923
  Receipt Date: 20110920
  Transmission Date: 20111222
  Serious: Yes (Hospitalization)
  Sender: FDA-Public Use
  Company Number: CN-GLAXOSMITHKLINE-B0739518A

PATIENT
  Age: 24 Year
  Sex: Female

DRUGS (1)
  1. LAMICTAL [Suspect]
     Indication: EPILEPSY
     Dosage: 25MG TWICE PER DAY
     Route: 048
     Dates: start: 20110727, end: 20110803

REACTIONS (4)
  - SKIN DISCOLOURATION [None]
  - BLISTER [None]
  - RASH [None]
  - BODY TEMPERATURE INCREASED [None]
